FAERS Safety Report 13926588 (Version 2)
Quarter: 2017Q3

REPORT INFORMATION
  Report Type: Report from Study
  Country: US (occurrence: US)
  Receive Date: 20170831
  Receipt Date: 20170919
  Transmission Date: 20171127
  Serious: Yes (Death)
  Sender: FDA-Public Use
  Company Number: US-EXELIXIS-CABO-17010344

PATIENT
  Sex: Male

DRUGS (24)
  1. EXCEDRIN [Concomitant]
     Active Substance: ACETAMINOPHEN\ASPIRIN\CAFFEINE
  2. CYANOCOBALAMIN. [Concomitant]
     Active Substance: CYANOCOBALAMIN
  3. HUMALOG [Concomitant]
     Active Substance: INSULIN LISPRO
  4. TRADJENTA [Concomitant]
     Active Substance: LINAGLIPTIN
  5. IMMUNICARE [Concomitant]
  6. CHLORTHALIDON [Concomitant]
  7. DESCOVY [Concomitant]
     Active Substance: EMTRICITABINE\TENOFOVIR ALAFENAMIDE FUMARATE
  8. PREZCOBIX [Concomitant]
     Active Substance: COBICISTAT\DARUNAVIR ETHANOLATE
  9. DEXAMETHASONE. [Concomitant]
     Active Substance: DEXAMETHASONE
  10. VITAMIN D [Concomitant]
     Active Substance: CHOLECALCIFEROL
  11. DAPSONE. [Concomitant]
     Active Substance: DAPSONE
  12. TIVICAY [Concomitant]
     Active Substance: DOLUTEGRAVIR SODIUM
  13. PRAVASTATIN. [Concomitant]
     Active Substance: PRAVASTATIN
  14. TOUJEO [Concomitant]
     Active Substance: INSULIN GLARGINE
  15. CABOMETYX [Suspect]
     Active Substance: CABOZANTINIB S-MALATE
     Indication: LUNG NEOPLASM MALIGNANT
     Dosage: 60 MG, QD
     Route: 048
     Dates: start: 20170729
  16. PROBIOTIC [Concomitant]
     Active Substance: PROBIOTICS NOS
  17. PANTOPRAZOLE [Concomitant]
     Active Substance: PANTOPRAZOLE
  18. LEVETIRACETAM. [Concomitant]
     Active Substance: LEVETIRACETAM
  19. SYNTHROID [Concomitant]
     Active Substance: LEVOTHYROXINE SODIUM
  20. METFORMIN [Concomitant]
     Active Substance: METFORMIN HYDROCHLORIDE
  21. GABAPENTIN. [Concomitant]
     Active Substance: GABAPENTIN
  22. LAMIVUDINE. [Concomitant]
     Active Substance: LAMIVUDINE
  23. COQ 10 [Concomitant]
     Active Substance: UBIDECARENONE
  24. ABACAVIR. [Concomitant]
     Active Substance: ABACAVIR

REACTIONS (2)
  - Malignant neoplasm progression [Fatal]
  - Off label use [Unknown]
